FAERS Safety Report 13608150 (Version 1)
Quarter: 2017Q2

REPORT INFORMATION
  Report Type: Spontaneous
  Country: US (occurrence: US)
  Receive Date: 20170602
  Receipt Date: 20170602
  Transmission Date: 20170830
  Serious: No
  Sender: FDA-Public Use
  Company Number: US-LEXICON PHARMACEUTICALS, INC-17-1606-00084

PATIENT
  Sex: Female

DRUGS (2)
  1. SOMATULINE LAR [Concomitant]
  2. TELOTRISTAT ETHYL [Suspect]
     Active Substance: TELOTRISTAT ETHYL
     Indication: CARCINOID SYNDROME
     Route: 048
     Dates: start: 20170331

REACTIONS (2)
  - Oedema peripheral [Recovering/Resolving]
  - Flatulence [Not Recovered/Not Resolved]
